FAERS Safety Report 4635278-2 (Version None)
Quarter: 2005Q2

REPORT INFORMATION
  Report Type: 
  Country: None (occurrence: None)
  Receive Date: 20050411
  Receipt Date: 20050328
  Transmission Date: 20051028
  Serious: Yes (Other)
  Sender: FDA-Public Use
  Company Number: 2005028239

PATIENT
  Age: 18 Year
  Sex: Female

DRUGS (2)
  1. GEODON [Suspect]
     Indication: BIPOLAR DISORDER
     Dosage: 160 MG (1 IN 1 D), ORAL
     Route: 048
     Dates: start: 20050121, end: 20050101
  2. AZITHROMYCIN [Concomitant]

REACTIONS (3)
  - FACIAL NERVE DISORDER [None]
  - TARDIVE DYSKINESIA [None]
  - TONGUE OEDEMA [None]
